FAERS Safety Report 12701153 (Version 1)
Quarter: 2016Q3

REPORT INFORMATION
  Report Type: Spontaneous
  Country: US (occurrence: None)
  Receive Date: 20160830
  Receipt Date: 20160830
  Transmission Date: 20161109
  Serious: Yes (Other)
  Sender: FDA-Public Use
  Company Number: None

PATIENT
  Age: 53 Year
  Sex: Female

DRUGS (3)
  1. CYCLOBENZAPRENE, 10MG [Suspect]
     Active Substance: CYCLOBENZAPRINE
     Indication: SLEEP DISORDER
     Route: 048
     Dates: start: 20160825, end: 20160828
  2. CYCLOBENZAPRENE, 10MG [Suspect]
     Active Substance: CYCLOBENZAPRINE
     Indication: PAIN
     Route: 048
     Dates: start: 20160825, end: 20160828
  3. CYCLOBENZAPRENE, 10MG [Suspect]
     Active Substance: CYCLOBENZAPRINE
     Indication: FIBROMYALGIA
     Route: 048
     Dates: start: 20160825, end: 20160828

REACTIONS (3)
  - Hypoaesthesia [None]
  - Paraesthesia [None]
  - Incorrect dose administered [None]

NARRATIVE: CASE EVENT DATE: 20160828
